FAERS Safety Report 6349429-5 (Version None)
Quarter: 2009Q3

REPORT INFORMATION
  Report Type: 
  Country: None (occurrence: None)
  Receive Date: 20090911
  Receipt Date: 20090902
  Transmission Date: 20100115
  Serious: Yes (Other)
  Sender: FDA-Public Use
  Company Number: JP-BRISTOL-MYERS SQUIBB COMPANY-14753461

PATIENT
  Age: 31 Year
  Sex: Female

DRUGS (7)
  1. ABILIFY [Suspect]
     Indication: SCHIZOPHRENIA
     Dosage: STRENGTH:6MG
     Route: 048
     Dates: start: 20090428
  2. MAGLAX [Concomitant]
     Dosage: TABLET
     Dates: start: 20090519, end: 20090601
  3. POSTERISAN FORTE [Concomitant]
     Dosage: OINTMENT, CREAM
     Dates: start: 20090519, end: 20090601
  4. LAXOBERON [Concomitant]
     Dosage: LIQUID
     Dates: start: 20090602
  5. ZITHROMAX [Concomitant]
     Dosage: TABLET
     Dates: start: 20090602, end: 20090602
  6. FERROMIA [Concomitant]
     Dosage: TABLET
     Dates: start: 20090602, end: 20090629
  7. UTEMERIN INJ [Concomitant]
     Dosage: ALSO RECEIVED UTERON (RITODRINE HCL) TABLET FROM 23-JUL-2009 TO 28-JUL-2009.
     Dates: start: 20090722, end: 20090722

REACTIONS (2)
  - CAESAREAN SECTION [None]
  - PREGNANCY [None]
